FAERS Safety Report 4978701-6 (Version None)
Quarter: 2006Q2

REPORT INFORMATION
  Report Type: 
  Country: None (occurrence: None)
  Receive Date: 20060420
  Receipt Date: 20051206
  Transmission Date: 20061013
  Serious: Yes (Hospitalization)
  Sender: FDA-Public Use
  Company Number: US-MERCK-0512USA01057

PATIENT
  Age: 60 Year
  Sex: Female
  Weight: 75 kg

DRUGS (8)
  1. VIOXX [Suspect]
     Indication: ARTHRALGIA
     Route: 048
     Dates: start: 19990101, end: 20011201
  2. ZESTRIL [Concomitant]
     Indication: HYPERTENSION
     Route: 065
  3. ADALAT [Concomitant]
     Indication: HYPERTENSION
     Route: 065
  4. HYDROCHLOROTHIAZIDE [Concomitant]
     Route: 065
  5. TENORMIN [Concomitant]
     Route: 065
  6. LIPITOR [Concomitant]
     Indication: BLOOD CHOLESTEROL INCREASED
     Route: 065
  7. ARTHROTEC [Concomitant]
     Route: 065
  8. SOMA [Concomitant]
     Route: 065

REACTIONS (14)
  - AMNESIA [None]
  - ANHEDONIA [None]
  - CATARACT [None]
  - CEREBROVASCULAR ACCIDENT [None]
  - DIABETES MELLITUS [None]
  - DIZZINESS [None]
  - FLUID RETENTION [None]
  - HAEMATOCHEZIA [None]
  - HYPERTENSION [None]
  - IRON DEFICIENCY ANAEMIA [None]
  - NEPHROLITHIASIS [None]
  - NERVOUS SYSTEM DISORDER [None]
  - PAIN [None]
  - ROAD TRAFFIC ACCIDENT [None]
